FAERS Safety Report 22734253 (Version 4)
Quarter: 2025Q1

REPORT INFORMATION
  Report Type: Report from Study
  Country: BR (occurrence: BR)
  Receive Date: 20230721
  Receipt Date: 20250122
  Transmission Date: 20250409
  Serious: Yes (Hospitalization, Other)
  Sender: CELLTRION
  Company Number: BR-CELLTRION INC.-2023BR014516

PATIENT

DRUGS (3)
  1. INFLIXIMAB-DYYB [Suspect]
     Active Substance: INFLIXIMAB-DYYB
     Indication: Psoriasis
     Route: 042
     Dates: start: 20220719
  2. INFLIXIMAB-DYYB [Suspect]
     Active Substance: INFLIXIMAB-DYYB
     Route: 042
  3. ESCITALOPRAM [Concomitant]
     Active Substance: ESCITALOPRAM OXALATE
     Indication: Depression
     Route: 048

REACTIONS (11)
  - Nephrolithiasis [Recovered/Resolved]
  - Dry mouth [Unknown]
  - Dry throat [Unknown]
  - Hepatic steatosis [Unknown]
  - Depressed mood [Unknown]
  - Stress [Unknown]
  - Symptom recurrence [Unknown]
  - Malaise [Unknown]
  - Psoriasis [Recovering/Resolving]
  - Intentional dose omission [Unknown]
  - Therapeutic response shortened [Unknown]

NARRATIVE: CASE EVENT DATE: 20230701
